FAERS Safety Report 4925418-X (Version None)
Quarter: 2006Q1

REPORT INFORMATION
  Report Type: 
  Country: None (occurrence: None)
  Receive Date: 20060228
  Receipt Date: 20050216
  Transmission Date: 20060701
  Serious: No
  Sender: FDA-Public Use
  Company Number: US-GLAXOSMITHKLINE-A0545908A

PATIENT
  Age: 15 Year
  Sex: Male
  Weight: 49.5 kg

DRUGS (15)
  1. LAMICTAL [Suspect]
     Dosage: 25MG TWICE PER DAY
     Route: 048
     Dates: start: 20040901, end: 20050221
  2. CONCERTA [Concomitant]
     Indication: ATTENTION DEFICIT/HYPERACTIVITY DISORDER
     Dosage: 36MG IN THE MORNING
     Route: 048
     Dates: start: 20021203
  3. RITALIN [Concomitant]
     Indication: ATTENTION DEFICIT/HYPERACTIVITY DISORDER
     Dosage: 20MG PER DAY
     Route: 048
     Dates: start: 20030923
  4. ALBUTEROL [Concomitant]
     Indication: ASTHMA
     Route: 055
  5. FLONASE [Concomitant]
     Route: 045
  6. FLOVENT [Concomitant]
     Indication: ASTHMA
     Route: 055
  7. MIRAPEX [Concomitant]
     Indication: ASTHMA
     Dosage: .125MG AT NIGHT
     Route: 048
     Dates: start: 20031211
  8. SINGULAIR [Concomitant]
     Route: 048
  9. ZOMIG [Concomitant]
     Indication: HEADACHE
     Route: 048
  10. MVI WITH IRON [Concomitant]
     Indication: GENERAL NUTRITION DISORDER
     Dosage: 1TAB PER DAY
     Route: 048
  11. ALLEGRA [Concomitant]
     Indication: SEASONAL ALLERGY
     Route: 048
  12. ACTIFED [Concomitant]
     Indication: SEASONAL ALLERGY
  13. SUDAFED 12 HOUR [Concomitant]
     Indication: SEASONAL ALLERGY
  14. BENADRYL [Concomitant]
     Indication: SEASONAL ALLERGY
  15. OPCON-A [Concomitant]
     Indication: SEASONAL ALLERGY
     Route: 047

REACTIONS (2)
  - FORMICATION [None]
  - PRURITUS [None]
